FAERS Safety Report 5325807-8 (Version None)
Quarter: 2007Q2

REPORT INFORMATION
  Report Type: 
  Country: None (occurrence: None)
  Receive Date: 20070510
  Receipt Date: 20070501
  Transmission Date: 20071010
  Serious: Yes (Death)
  Sender: FDA-Public Use
  Company Number: 2007AL001773

PATIENT
  Age: 31 Year
  Sex: Male

DRUGS (6)
  1. RANITIDINE [Suspect]
     Indication: DYSPEPSIA
     Dosage: 150 MG; QD; PO
     Route: 048
  2. VENLAFAXINE HCL [Concomitant]
  3. CLOZARIL [Concomitant]
  4. DIHYDROCODEINE BITARTRATE INJ [Concomitant]
  5. SALBUTAMOL [Concomitant]
  6. BECLOMETHASONE DIPROPIONATE [Concomitant]

REACTIONS (4)
  - LOWER RESPIRATORY TRACT INFECTION [None]
  - MYALGIA [None]
  - PLEURISY [None]
  - PNEUMONIA [None]
